FAERS Safety Report 9640070 (Version 3)
Quarter: 2013Q4

REPORT INFORMATION
  Report Type: Spontaneous
  Country: GB (occurrence: GB)
  Receive Date: 20131023
  Receipt Date: 20131121
  Transmission Date: 20140711
  Serious: Yes (Hospitalization, Other)
  Sender: FDA-Public Use
  Company Number: PHFR2013GB005951

PATIENT
  Age: 51 Year
  Sex: Female

DRUGS (6)
  1. CLOZARIL [Suspect]
     Indication: SCHIZOPHRENIA
     Dosage: UKN
     Route: 048
     Dates: start: 20010701
  2. CLOZARIL [Suspect]
     Indication: HISTRIONIC PERSONALITY DISORDER
     Dosage: 200 MG, NOCTE
     Route: 048
  3. FLUOXETINE [Concomitant]
     Indication: DEPRESSION
     Dosage: 20 MG, UNK
     Route: 048
  4. EPILIM CHRONO [Concomitant]
     Indication: AFFECTIVE DISORDER
     Dosage: 400 MG, UNK
     Route: 048
  5. PROCYCLIDINE [Concomitant]
     Indication: EXTRAPYRAMIDAL DISORDER
     Dosage: 10 MG, TID
     Route: 048
  6. WARFARIN [Concomitant]
     Indication: DEEP VEIN THROMBOSIS
     Dosage: UKN
     Route: 048

REACTIONS (8)
  - Urosepsis [Unknown]
  - Urinary tract infection [Recovered/Resolved]
  - Diabetes mellitus [Unknown]
  - Hypothyroidism [Unknown]
  - Hypercholesterolaemia [Unknown]
  - Hypertension [Unknown]
  - Urinary incontinence [Unknown]
  - Haemoglobin decreased [Unknown]
